FAERS Safety Report 8572796 (Version 4)
Quarter: 2014Q1

REPORT INFORMATION
  Report Type: Spontaneous
  Country: US (occurrence: US)
  Receive Date: 20120522
  Receipt Date: 20140122
  Transmission Date: 20141002
  Serious: Yes (Hospitalization, Other)
  Sender: FDA-Public Use
  Company Number: US-JNJFOC-20120508239

PATIENT
  Age: 68 Year
  Sex: Female
  Weight: 47.17 kg

DRUGS (10)
  1. DURAGESIC [Suspect]
     Indication: PAIN
     Route: 062
  2. DURAGESIC [Suspect]
     Indication: PAIN
     Route: 062
     Dates: end: 2009
  3. DURAGESIC [Suspect]
     Indication: PAIN
     Route: 062
     Dates: start: 2004
  4. DURAGESIC [Suspect]
     Indication: FIBROMYALGIA
     Route: 062
     Dates: start: 2009
  5. DURAGESIC [Suspect]
     Indication: PAIN
     Route: 062
     Dates: start: 2009
  6. TIAZAC [Concomitant]
     Indication: CARDIAC DISORDER
     Route: 048
  7. HYZAAR [Concomitant]
     Indication: BLOOD PRESSURE
     Dosage: 50/1.5MG
     Route: 048
  8. TOPROL [Concomitant]
     Indication: BLOOD PRESSURE
     Dosage: 25MG/AT NIGHT
     Route: 065
  9. KLOR CON [Concomitant]
     Indication: NUTRITIONAL SUPPLEMENTATION
     Route: 048
  10. SKELAXIN [Concomitant]
     Indication: MUSCLE RELAXANT THERAPY
     Route: 048

REACTIONS (24)
  - Hyperhidrosis [Unknown]
  - Loss of consciousness [Recovered/Resolved]
  - Syncope [Recovered/Resolved]
  - Blood pressure fluctuation [Not Recovered/Not Resolved]
  - Drug administered at inappropriate site [Recovered/Resolved]
  - Insomnia [Not Recovered/Not Resolved]
  - Diplopia [Not Recovered/Not Resolved]
  - Adverse event [Not Recovered/Not Resolved]
  - Product adhesion issue [Unknown]
  - Herpes zoster [Recovering/Resolving]
  - Rib fracture [Not Recovered/Not Resolved]
  - Abnormal loss of weight [Not Recovered/Not Resolved]
  - Dermatitis contact [Not Recovered/Not Resolved]
  - Fall [Not Recovered/Not Resolved]
  - Impaired healing [Recovering/Resolving]
  - Insomnia [Not Recovered/Not Resolved]
  - Fatigue [Not Recovered/Not Resolved]
  - Dermatitis contact [Not Recovered/Not Resolved]
  - Wrong technique in drug usage process [Unknown]
  - Wrong technique in drug usage process [Not Recovered/Not Resolved]
  - Wrong technique in drug usage process [Unknown]
  - Wrist fracture [Not Recovered/Not Resolved]
  - Jaw fracture [Not Recovered/Not Resolved]
  - Dermatitis contact [Recovered/Resolved]
